FAERS Safety Report 4435584-0 (Version None)
Quarter: 2004Q3

REPORT INFORMATION
  Report Type: 
  Country: None (occurrence: None)
  Receive Date: 20040726
  Receipt Date: 20040510
  Transmission Date: 20050211
  Serious: No
  Sender: FDA-Public Use
  Company Number: USA040567108

PATIENT
  Age: 84 Year
  Sex: Female
  Weight: 45 kg

DRUGS (1)
  1. FORTEO [Suspect]
     Indication: OSTEOPOROSIS
     Dosage: 20 UG/1 DAY
     Dates: start: 20040402, end: 20040507

REACTIONS (5)
  - EYE PAIN [None]
  - EYE SWELLING [None]
  - KERATOCONJUNCTIVITIS SICCA [None]
  - PAIN IN EXTREMITY [None]
  - VASODILATATION [None]
